FAERS Safety Report 5839132-X (Version None)
Quarter: 2008Q3

REPORT INFORMATION
  Report Type: 
  Country: None (occurrence: None)
  Receive Date: 20080808
  Receipt Date: 20080728
  Transmission Date: 20090109
  Serious: Yes (Death, Hospitalization)
  Sender: FDA-Public Use
  Company Number: GB-PFIZER INC-2008063363

PATIENT
  Age: 76 Year
  Sex: Male
  Weight: 85 kg

DRUGS (6)
  1. NITROGLYCERIN [Suspect]
  2. DICLOFENAC SODIUM [Suspect]
     Dosage: FREQ:DAILY
     Route: 048
  3. ACETYLSALICYLIC ACID SRT [Suspect]
     Dosage: FREQ:DAILY
     Route: 048
  4. CO-TENIDONE [Concomitant]
     Indication: ANGINA PECTORIS
     Route: 048
  5. RAMIPRIL [Concomitant]
     Indication: BLOOD PRESSURE INCREASED
     Dosage: DAILY DOSE:10MG-FREQ:DAILY
     Route: 048
  6. SIMVASTATIN [Concomitant]
     Indication: PROPHYLAXIS
     Dosage: DAILY DOSE:40MG-FREQ:DAILY
     Route: 048

REACTIONS (2)
  - ABDOMINAL PAIN [None]
  - GASTROINTESTINAL HAEMORRHAGE [None]
